FAERS Safety Report 10085597 (Version 2)
Quarter: 2014Q2

REPORT INFORMATION
  Report Type: Spontaneous
  Country: IT (occurrence: IT)
  Receive Date: 20140418
  Receipt Date: 20140425
  Transmission Date: 20141212
  Serious: Yes (Other)
  Sender: FDA-Public Use
  Company Number: IT-BRISTOL-MYERS SQUIBB COMPANY-20622734

PATIENT
  Age: 65 Year
  Sex: Male

DRUGS (1)
  1. COUMADIN TABS 5 MG [Suspect]
     Dosage: INT:25AUG2013
     Route: 048
     Dates: start: 20120825

REACTIONS (2)
  - Hypertensive crisis [Recovered/Resolved]
  - Epistaxis [Recovered/Resolved]
